FAERS Safety Report 9089295 (Version 1)
Quarter: 2013Q1

REPORT INFORMATION
  Report Type: Spontaneous
  Country: JP (occurrence: JP)
  Receive Date: 20130201
  Receipt Date: 20130201
  Transmission Date: 20140127
  Serious: Yes (Death)
  Sender: FDA-Public Use
  Company Number: JP-BAYER-2013-009125

PATIENT
  Age: 86 Year
  Sex: Female

DRUGS (2)
  1. ACETYLSALICYLIC ACID({=100 MG) [Suspect]
     Route: 048
  2. TICLOPIDINE HYDROCHLORIDE [Suspect]
     Route: 048

REACTIONS (1)
  - Haemorrhage intracranial [Fatal]
